FAERS Safety Report 17013053 (Version 1)
Quarter: 2019Q4

REPORT INFORMATION
  Report Type: Spontaneous
  Country: US (occurrence: US)
  Receive Date: 20191002
  Receipt Date: 20191002
  Transmission Date: 20200122
  Serious: No
  Sender: FDA-Public Use
  Company Number: None

PATIENT
  Age: 22 Year
  Sex: Male

DRUGS (1)
  1. IMATINIB 400MG TAB (X30) [Suspect]
     Active Substance: IMATINIB
     Dosage: ?          OTHER DOSE:1 TABLET;?
     Route: 048
     Dates: start: 201904

REACTIONS (2)
  - Surgery [None]
  - Full blood count decreased [None]

NARRATIVE: CASE EVENT DATE: 20191002
